FAERS Safety Report 8901114 (Version 2)
Quarter: 2012Q4

REPORT INFORMATION
  Report Type: 
  Country: AU (occurrence: AU)
  Receive Date: 20121108
  Receipt Date: 20121130
  Transmission Date: 20130627
  Serious: Yes (Death)
  Sender: FDA-Public Use
  Company Number: AU-B.I. PHARMACEUTICALS,INC./RIDGEFIELD-2012-AU-01857AU

PATIENT
  Age: 74 Year
  Sex: Male

DRUGS (6)
  1. PRADAXA [Suspect]
     Indication: CEREBROVASCULAR ACCIDENT PROPHYLAXIS
     Dosage: 300 mg
     Dates: start: 20110712, end: 201209
  2. PRADAXA [Suspect]
     Indication: ATRIAL FIBRILLATION
  3. FRUSEMIDE [Concomitant]
  4. ZANIDIP [Concomitant]
  5. PANADOL OSTEO [Concomitant]
  6. SERETIDE [Concomitant]
     Indication: COUGH

REACTIONS (2)
  - Lung neoplasm malignant [Fatal]
  - Renal cancer [Fatal]
